FAERS Safety Report 22218286 (Version 5)
Quarter: 2023Q2

REPORT INFORMATION
  Report Type: Spontaneous
  Country: US (occurrence: CR)
  Receive Date: 20230417
  Receipt Date: 20230626
  Transmission Date: 20230722
  Serious: No
  Sender: FDA-Public Use
  Company Number: US-PFIZER INC-PV202300062650

PATIENT
  Age: 63 Year
  Sex: Male
  Weight: 100 kg

DRUGS (2)
  1. GENOTROPIN [Suspect]
     Active Substance: SOMATROPIN
     Indication: Growth hormone deficiency
     Dosage: UNK (PATIENT GIVES TO HIMSELF, THINKS IT IS 0.6, NOT SURE IF MCG OR MG)
  2. GENOTROPIN [Suspect]
     Active Substance: SOMATROPIN
     Dosage: 0.6 MG
     Route: 058
     Dates: start: 2000

REACTIONS (2)
  - Device use issue [Unknown]
  - Expired device used [Unknown]
